FAERS Safety Report 22130812 (Version 2)
Quarter: 2023Q2

REPORT INFORMATION
  Report Type: Spontaneous
  Country: RU (occurrence: RU)
  Receive Date: 20230323
  Receipt Date: 20230403
  Transmission Date: 20230721
  Serious: Yes (Other)
  Sender: FDA-Public Use
  Company Number: RU-VERTEX PHARMACEUTICALS-2023-003917

PATIENT
  Age: 13 Year
  Sex: Male

DRUGS (1)
  1. ORKAMBI [Suspect]
     Active Substance: IVACAFTOR\LUMACAFTOR
     Indication: Cystic fibrosis
     Dosage: LUMACAFTOR/IVACAFTOR
     Route: 048

REACTIONS (2)
  - Hepatitis [Unknown]
  - Cytomegalovirus infection [Unknown]
